FAERS Safety Report 16261381 (Version 1)
Quarter: 2019Q2

REPORT INFORMATION
  Report Type: Spontaneous
  Country: DE (occurrence: DE)
  Receive Date: 20190501
  Receipt Date: 20190501
  Transmission Date: 20190711
  Serious: Yes (Other)
  Sender: FDA-Public Use
  Company Number: DE-INCYTE CORPORATION-2019IN004201

PATIENT

DRUGS (14)
  1. CICLOSPORIN [Suspect]
     Active Substance: CYCLOSPORINE
     Indication: STEM CELL THERAPY
     Route: 065
  2. RITUXIMAB. [Suspect]
     Active Substance: RITUXIMAB
     Indication: STEM CELL TRANSPLANT
     Dosage: UNK
     Route: 065
  3. MYCOPHENOLATE MOFETIL. [Suspect]
     Active Substance: MYCOPHENOLATE MOFETIL
     Indication: PROPHYLAXIS AGAINST GRAFT VERSUS HOST DISEASE
  4. METHOTREXATE. [Suspect]
     Active Substance: METHOTREXATE
     Indication: PROPHYLAXIS AGAINST GRAFT VERSUS HOST DISEASE
  5. MYCOPHENOLATE MOFETIL. [Suspect]
     Active Substance: MYCOPHENOLATE MOFETIL
     Indication: STEM CELL TRANSPLANT
     Route: 065
  6. INTERLEUKIN-2 [Suspect]
     Active Substance: ALDESLEUKIN
     Indication: STEM CELL TRANSPLANT
     Route: 065
  7. INTERLEUKIN-2 [Suspect]
     Active Substance: ALDESLEUKIN
     Indication: PROPHYLAXIS AGAINST GRAFT VERSUS HOST DISEASE
  8. FLUDARABINE [Concomitant]
     Active Substance: FLUDARABINE PHOSPHATE
     Indication: BONE MARROW CONDITIONING REGIMEN
     Route: 065
  9. JAKAVI [Suspect]
     Active Substance: RUXOLITINIB
     Indication: PROPHYLAXIS AGAINST GRAFT VERSUS HOST DISEASE
  10. CYCLOPHOSPHAMIDE. [Concomitant]
     Active Substance: CYCLOPHOSPHAMIDE
     Indication: BONE MARROW CONDITIONING REGIMEN
     Route: 065
  11. METHOTREXATE. [Suspect]
     Active Substance: METHOTREXATE
     Indication: STEM CELL TRANSPLANT
     Route: 065
  12. JAKAVI [Suspect]
     Active Substance: RUXOLITINIB
     Indication: STEM CELL TRANSPLANT
     Route: 065
  13. CICLOSPORIN [Suspect]
     Active Substance: CYCLOSPORINE
     Indication: PROPHYLAXIS AGAINST GRAFT VERSUS HOST DISEASE
  14. RITUXIMAB. [Suspect]
     Active Substance: RITUXIMAB
     Indication: PROPHYLAXIS AGAINST GRAFT VERSUS HOST DISEASE

REACTIONS (9)
  - Graft versus host disease in eye [Not Recovered/Not Resolved]
  - Chronic graft versus host disease [Not Recovered/Not Resolved]
  - Disease progression [Not Recovered/Not Resolved]
  - Skin ulcer [Not Recovered/Not Resolved]
  - Therapy non-responder [Unknown]
  - Product use in unapproved indication [Unknown]
  - Chronic graft versus host disease in skin [Not Recovered/Not Resolved]
  - Chronic graft versus host disease in liver [Not Recovered/Not Resolved]
  - Graft versus host disease in gastrointestinal tract [Not Recovered/Not Resolved]
